FAERS Safety Report 8587215-6 (Version None)
Quarter: 2012Q3

REPORT INFORMATION
  Report Type: 
  Country: None (occurrence: None)
  Receive Date: 20120810
  Receipt Date: 20120417
  Transmission Date: 20120928
  Serious: No
  Sender: FDA-Public Use
  Company Number: US-ASTRAZENECA-2011SE44820

PATIENT
  Age: 81 Year
  Sex: Female

DRUGS (2)
  1. ARIMIDEX [Suspect]
     Route: 048
  2. ZOCOR [Suspect]
     Route: 065

REACTIONS (5)
  - MUSCLE DISORDER [None]
  - LIMB DISCOMFORT [None]
  - ADVERSE DRUG REACTION [None]
  - MALAISE [None]
  - FATIGUE [None]
